FAERS Safety Report 7549666-8 (Version None)
Quarter: 2011Q2

REPORT INFORMATION
  Report Type: 
  Country: None (occurrence: None)
  Receive Date: 20110609
  Receipt Date: 20110524
  Transmission Date: 20111010
  Serious: Yes (Hospitalization, Other)
  Sender: FDA-Public Use
  Company Number: 2011MA006374

PATIENT
  Age: 74 Year
  Sex: Female

DRUGS (7)
  1. RISPERIDONE [Concomitant]
  2. ASPIRIN [Concomitant]
  3. CITALOPRAM HYDROBROMIDE [Suspect]
     Indication: DEPRESSION
     Dosage: 40 MG;OD
  4. LEVOTHYROXINE SODIUM [Concomitant]
  5. DONEPEZIL HCL [Concomitant]
  6. MEMANTINE [Concomitant]
  7. ATENOLOL [Concomitant]

REACTIONS (15)
  - VOMITING [None]
  - CONDITION AGGRAVATED [None]
  - ASPARTATE AMINOTRANSFERASE INCREASED [None]
  - SEROTONIN SYNDROME [None]
  - DIARRHOEA [None]
  - CONFUSIONAL STATE [None]
  - SPEECH DISORDER [None]
  - NAUSEA [None]
  - RENAL FAILURE ACUTE [None]
  - MENTAL STATUS CHANGES [None]
  - TOXICITY TO VARIOUS AGENTS [None]
  - AFFECTIVE DISORDER [None]
  - URINARY TRACT INFECTION [None]
  - ABNORMAL BEHAVIOUR [None]
  - ALANINE AMINOTRANSFERASE INCREASED [None]
